FAERS Safety Report 13306705 (Version 1)
Quarter: 2017Q1

REPORT INFORMATION
  Report Type: Spontaneous
  Country: US (occurrence: US)
  Receive Date: 20170308
  Receipt Date: 20170308
  Transmission Date: 20170428
  Serious: No
  Sender: FDA-Public Use
  Company Number: US-AKORN PHARMACEUTICALS-2016AKN00905

PATIENT
  Sex: Male
  Weight: 72.56 kg

DRUGS (1)
  1. MYORISAN [Suspect]
     Active Substance: ISOTRETINOIN
     Indication: ACNE
     Dosage: 1 CAPSULES, 1X/DAY
     Route: 048
     Dates: start: 20161106

REACTIONS (7)
  - Erythema [Unknown]
  - Chapped lips [Not Recovered/Not Resolved]
  - Skin exfoliation [Unknown]
  - Acne [Unknown]
  - Skin fissures [Unknown]
  - Dry skin [Not Recovered/Not Resolved]
  - Lip haemorrhage [Unknown]

NARRATIVE: CASE EVENT DATE: 2016
